FAERS Safety Report 8591146-5 (Version None)
Quarter: 2012Q3

REPORT INFORMATION
  Report Type: 
  Country: None (occurrence: None)
  Receive Date: 20120813
  Receipt Date: 20120809
  Transmission Date: 20120928
  Serious: Yes (Hospitalization, Other)
  Sender: FDA-Public Use
  Company Number: DE-ABBOTT-12P-062-0966338-00

PATIENT
  Age: 52 Year
  Sex: Female

DRUGS (3)
  1. HUMIRA [Suspect]
     Indication: RHEUMATOID ARTHRITIS
     Dates: end: 20120425
  2. HUMIRA [Suspect]
     Dates: start: 20120709
  3. HUMIRA [Suspect]
     Dates: start: 20120518, end: 20120616

REACTIONS (1)
  - FOOT DEFORMITY [None]
